FAERS Safety Report 6020253-6 (Version None)
Quarter: 2008Q4

REPORT INFORMATION
  Report Type: 
  Country: None (occurrence: None)
  Receive Date: 20081226
  Receipt Date: 20081216
  Transmission Date: 20090506
  Serious: Yes (Other)
  Sender: FDA-Public Use
  Company Number: PHEH2008US11151

PATIENT
  Sex: Male

DRUGS (2)
  1. ZOMETA [Suspect]
     Indication: METASTASES TO BONE
     Dosage: 4 MG, Q3MO
     Route: 042
  2. ZOMETA [Suspect]
     Indication: PROPHYLAXIS

REACTIONS (3)
  - ORAL SURGERY [None]
  - PAIN [None]
  - TOOTH DISORDER [None]
